FAERS Safety Report 10179059 (Version 2)
Quarter: 2014Q4

REPORT INFORMATION
  Report Type: Report from Study
  Country: US (occurrence: None)
  Receive Date: 20140515
  Receipt Date: 20141023
  Transmission Date: 20150528
  Serious: Yes (Hospitalization)
  Sender: FDA-Public Use
  Company Number: 2014SGN00513

PATIENT
  Age: 27 Year
  Sex: Male
  Weight: 61.2 kg

DRUGS (18)
  1. ONDANSETRON. [Concomitant]
     Active Substance: ONDANSETRON
  2. DOXORUBICIN [Suspect]
     Active Substance: DOXORUBICIN
     Indication: HODGKIN^S DISEASE
     Dosage: 25 MG/KG, QCYCLE, INTRAVENOUS
     Route: 042
     Dates: end: 20140422
  3. COMPAZINE (PROCHLORPERAZINE MALEATE) [Concomitant]
  4. DILAUDID [Concomitant]
     Active Substance: HYDROMORPHONE HYDROCHLORIDE
  5. LORAZEPAM (LORAZEPAM) [Concomitant]
     Active Substance: LORAZEPAM
  6. ZOLOFT [Concomitant]
     Active Substance: SERTRALINE HYDROCHLORIDE
  7. BRENTUXIMAB VEDOTIN [Suspect]
     Active Substance: BRENTUXIMAB VEDOTIN
     Indication: HODGKIN^S DISEASE
     Dosage: 1.2 MG/KG, QCYCLE, INTRAVENOUS
     Route: 042
     Dates: end: 20140422
  8. VINBLASTINE [Suspect]
     Active Substance: VINBLASTINE
     Indication: HODGKIN^S DISEASE
     Dosage: 6 MG/M2, QCYCLE, INTRAVENOUS
     Route: 042
     Dates: end: 20140422
  9. MESALAMINE (MESALAMINE) [Concomitant]
  10. NEUPOGEN (FILGRASTIM) [Concomitant]
     Active Substance: FILGRASTIM
  11. URSODIOL (URSODIOL) [Concomitant]
  12. ENTOCORT (BUDESONIDE) [Concomitant]
  13. BUPROPION (BUPROPION) [Concomitant]
     Active Substance: BUPROPION
  14. DACARBAZINE. [Suspect]
     Active Substance: DACARBAZINE
     Indication: HODGKIN^S DISEASE
     Dosage: 375 MG/M2, QCYCLE, INTRAVENOUS
     Route: 042
     Dates: end: 20140422
  15. KLONOPIN [Concomitant]
     Active Substance: CLONAZEPAM
  16. PREDNISONE. [Concomitant]
     Active Substance: PREDNISONE
  17. PRILOSEC (OMEPRAZOLE) [Concomitant]
     Active Substance: OMEPRAZOLE MAGNESIUM
  18. REMERON (MIRTAZAPINE) [Concomitant]

REACTIONS (11)
  - Vomiting [None]
  - Abdominal tenderness [None]
  - Hypophagia [None]
  - Nausea [None]
  - Dehydration [None]
  - Fluid intake reduced [None]
  - Abdominal pain [None]
  - Diarrhoea [None]
  - Drug intolerance [None]
  - Muscle strain [None]
  - Weight decreased [None]

NARRATIVE: CASE EVENT DATE: 20140428
